FAERS Safety Report 7581710-4 (Version None)
Quarter: 2011Q2

REPORT INFORMATION
  Report Type: 
  Country: None (occurrence: None)
  Receive Date: 20110629
  Receipt Date: 20110608
  Transmission Date: 20111010
  Serious: Yes (Hospitalization, Other)
  Sender: FDA-Public Use
  Company Number: US-BAYER-201035468NA

PATIENT
  Age: 29 Year
  Sex: Female
  Weight: 88.435 kg

DRUGS (15)
  1. PROPOXPHENE-N 100 [Concomitant]
     Dosage: UNK
     Dates: start: 20070101
  2. AZITHROMYCIN [Concomitant]
     Dosage: UNK
     Dates: start: 20070101
  3. YASMIN [Suspect]
     Indication: ORAL CONTRACEPTION
     Dosage: UNK
     Route: 048
     Dates: start: 20060401, end: 20100401
  4. METHOTREXATE [Concomitant]
     Indication: PSORIATIC ARTHROPATHY
     Dosage: UNK
     Dates: start: 20070701
  5. ENBREL [Concomitant]
     Indication: RHEUMATOID ARTHRITIS
     Dosage: UNK
     Dates: start: 20070101, end: 20090401
  6. CYCLOBENAZPRINE [Concomitant]
     Dosage: UNK
     Dates: start: 20070101
  7. ZITHROMAX [Concomitant]
     Indication: UNEVALUABLE EVENT
     Dosage: UNK UNK, PRN
     Dates: start: 20000101, end: 20100101
  8. MOTRIN [Concomitant]
     Dosage: UNK
     Dates: start: 19900101
  9. YAZ [Suspect]
     Indication: ORAL CONTRACEPTION
     Route: 048
     Dates: start: 20060401
  10. MAXALT [Concomitant]
     Indication: MIGRAINE
     Dosage: UNK
     Dates: start: 20000101
  11. NAPROXEN [Concomitant]
     Dosage: UNK
     Dates: start: 20070101
  12. AMOXIL [Concomitant]
     Indication: UNEVALUABLE EVENT
     Dosage: UNK UNK, PRN
     Dates: start: 20000101, end: 20100101
  13. FLUOCINONIDE [Concomitant]
     Dosage: UNK
     Dates: start: 20070701
  14. SKELAXIN [Concomitant]
     Dosage: UNK
     Dates: start: 20070101
  15. HYDROCODONE BITARTRATE AND ACETAMINOPHEN [Concomitant]
     Dosage: UNK
     Dates: start: 20060101, end: 20080101

REACTIONS (10)
  - CHOLECYSTITIS CHRONIC [None]
  - BENIGN LYMPH NODE NEOPLASM [None]
  - MUSCULOSKELETAL CHEST PAIN [None]
  - ABDOMINAL PAIN UPPER [None]
  - PAIN [None]
  - BILIARY COLIC [None]
  - DIARRHOEA [None]
  - LIPOGRANULOMA [None]
  - CHOLELITHIASIS [None]
  - NAUSEA [None]
